FAERS Safety Report 25602972 (Version 2)
Quarter: 2025Q3

REPORT INFORMATION
  Report Type: Spontaneous
  Country: US (occurrence: US)
  Receive Date: 20250724
  Receipt Date: 20250805
  Transmission Date: 20251021
  Serious: Yes (Other)
  Sender: UCB
  Company Number: US-UCBSA-2025042107

PATIENT
  Sex: Male
  Weight: 60.781 kg

DRUGS (12)
  1. CIMZIA [Suspect]
     Active Substance: CERTOLIZUMAB PEGOL
     Indication: Ankylosing spondylitis
     Dosage: 400 MILLIGRAM, MONTHLY (QM)
     Route: 058
     Dates: start: 20230923, end: 2025
  2. CIMZIA [Suspect]
     Active Substance: CERTOLIZUMAB PEGOL
     Dates: start: 20250510
  3. LORATADINE [Concomitant]
     Active Substance: LORATADINE
     Indication: Product used for unknown indication
  4. FLONASE ALLERGY RELIEF [Concomitant]
     Active Substance: FLUTICASONE PROPIONATE
     Indication: Product used for unknown indication
  5. TYLENOL [Concomitant]
     Active Substance: ACETAMINOPHEN
     Indication: Product used for unknown indication
  6. MISOPROSTOL [Concomitant]
     Active Substance: MISOPROSTOL
     Indication: Prophylaxis
     Dosage: 200 MICROGRAM, 4X/DAY (QID)
     Route: 048
     Dates: start: 2000
  7. PEPCID [Concomitant]
     Active Substance: FAMOTIDINE
     Indication: Product used for unknown indication
  8. CREON [Concomitant]
     Active Substance: PANCRELIPASE AMYLASE\PANCRELIPASE LIPASE\PANCRELIPASE PROTEASE
     Indication: Product used for unknown indication
  9. VITAMIN B COMPLEX [Concomitant]
     Active Substance: CYANOCOBALAMIN\DEXPANTHENOL\NIACINAMIDE\PYRIDOXINE HYDROCHLORIDE\RIBOFLAVIN 5^-PHOSPHATE SODIUM\THIA
     Indication: Product used for unknown indication
  10. OMEPRAZOLE [Concomitant]
     Active Substance: OMEPRAZOLE
     Indication: Product used for unknown indication
  11. FLURBIPROFEN [Concomitant]
     Active Substance: FLURBIPROFEN
     Indication: Ankylosing spondylitis
     Dosage: 100 MILLIGRAM, 2X/DAY (BID)
     Route: 048
     Dates: start: 1993
  12. FAMOTIDINE [Concomitant]
     Active Substance: FAMOTIDINE
     Indication: Gastric ulcer
     Dosage: 40 MILLIGRAM, 2X/DAY (BID)
     Route: 048
     Dates: start: 2015

REACTIONS (4)
  - Surgery [Not Recovered/Not Resolved]
  - Anorectal infection [Not Recovered/Not Resolved]
  - Calcinosis [Unknown]
  - Immune system disorder [Unknown]

NARRATIVE: CASE EVENT DATE: 20240101
